FAERS Safety Report 4984269-0 (Version None)
Quarter: 2006Q2

REPORT INFORMATION
  Report Type: 
  Country: None (occurrence: None)
  Receive Date: 20060427
  Receipt Date: 20060418
  Transmission Date: 20061013
  Serious: Yes (Disabling)
  Sender: FDA-Public Use
  Company Number: JP-JNJFOC-20060403728

PATIENT
  Age: 37 Year
  Sex: Female

DRUGS (1)
  1. OFLOXACIN [Suspect]
     Indication: URINARY TRACT INFECTION
     Route: 065
     Dates: start: 20051001, end: 20051101

REACTIONS (7)
  - ANXIETY [None]
  - ASTHENIA [None]
  - EMOTIONAL DISORDER [None]
  - PALPITATIONS [None]
  - PERSONALITY CHANGE [None]
  - SLEEP DISORDER [None]
  - VISION BLURRED [None]
